FAERS Safety Report 6784919-2 (Version None)
Quarter: 2010Q2

REPORT INFORMATION
  Report Type: 
  Country: None (occurrence: None)
  Receive Date: 20100618
  Receipt Date: 20100610
  Transmission Date: 20101027
  Serious: Yes (Hospitalization)
  Sender: FDA-Public Use
  Company Number: USA/USA/10/0013621

PATIENT
  Age: 62 Year
  Sex: Female
  Weight: 65.9984 kg

DRUGS (8)
  1. GLIMEPIRIDE [Suspect]
     Indication: TYPE 2 DIABETES MELLITUS
     Dosage: 4 MG, 1 IN 1 D, PER ORAL; 4 MG, 1 IN 1 D, PER ORAL, 2 MG, 2 IN 1 D, PER ORAL
     Route: 048
     Dates: start: 20070101, end: 20100317
  2. GLIMEPIRIDE [Suspect]
     Indication: TYPE 2 DIABETES MELLITUS
     Dosage: 4 MG, 1 IN 1 D, PER ORAL; 4 MG, 1 IN 1 D, PER ORAL, 2 MG, 2 IN 1 D, PER ORAL
     Route: 048
     Dates: start: 20100318, end: 20100329
  3. GLIMEPIRIDE [Suspect]
     Indication: TYPE 2 DIABETES MELLITUS
     Dosage: 4 MG, 1 IN 1 D, PER ORAL; 4 MG, 1 IN 1 D, PER ORAL, 2 MG, 2 IN 1 D, PER ORAL
     Route: 048
     Dates: start: 20100413
  4. SINGLE BLIND PLACEBO [Suspect]
     Indication: TYPE 2 DIABETES MELLITUS
     Dosage: PER ORAL
     Route: 048
     Dates: start: 20100318, end: 20100329
  5. METFORMIN HCL [Suspect]
     Indication: TYPE 2 DIABETES MELLITUS
     Dosage: 500 MG, 2 IN 1 D, PER ORAL
     Route: 048
     Dates: start: 20100318, end: 20100329
  6. LISINOPRIL [Concomitant]
  7. DARVOCET N50MG (PROPACET) [Concomitant]
  8. LIALDA [Concomitant]

REACTIONS (4)
  - INJURY [None]
  - RIB FRACTURE [None]
  - ROAD TRAFFIC ACCIDENT [None]
  - TIBIA FRACTURE [None]
